FAERS Safety Report 16699278 (Version 4)
Quarter: 2019Q3

REPORT INFORMATION
  Report Type: Report from Study
  Country: DE (occurrence: DE)
  Receive Date: 20190813
  Receipt Date: 20190926
  Transmission Date: 20191004
  Serious: Yes (Other)
  Sender: FDA-Public Use
  Company Number: PHHY2019DE188191

PATIENT
  Sex: Female
  Weight: 74 kg

DRUGS (9)
  1. KISQALI [Suspect]
     Active Substance: RIBOCICLIB
     Dosage: 600 MG, DAILY
     Route: 048
     Dates: start: 20190222, end: 20190320
  2. KISQALI [Suspect]
     Active Substance: RIBOCICLIB
     Dosage: 600 MG, 21 DAYS INTAKE, 7 DAYS PAUSE
     Route: 048
     Dates: start: 20190516, end: 20190612
  3. KISQALI [Suspect]
     Active Substance: RIBOCICLIB
     Dosage: 600 MG, 21 DAYS INTAKE, 7 DAYS PAUSE
     Route: 048
     Dates: start: 20190321, end: 20190417
  4. KISQALI [Suspect]
     Active Substance: RIBOCICLIB
     Dosage: 600 MG, 21 DAYS INTAKE, 7 DAYS PAUSE
     Route: 048
     Dates: start: 20190613, end: 20190710
  5. KISQALI [Suspect]
     Active Substance: RIBOCICLIB
     Dosage: 600 MG, 21 DAYS INTAKE, 7 DAYS PAUSE
     Route: 048
     Dates: start: 20190418, end: 20190515
  6. KISQALI [Suspect]
     Active Substance: RIBOCICLIB
     Dosage: 400 MG, DAILY
     Route: 048
     Dates: start: 20190215, end: 20190220
  7. KISQALI [Suspect]
     Active Substance: RIBOCICLIB
     Dosage: 600 MG, DAILY
     Route: 048
     Dates: start: 20190221, end: 20190221
  8. KISQALI [Suspect]
     Active Substance: RIBOCICLIB
     Indication: BREAST CANCER METASTATIC
     Dosage: 600 MG, DAILY
     Route: 048
     Dates: start: 20190124, end: 20190214
  9. LETROZOLE. [Suspect]
     Active Substance: LETROZOLE
     Indication: BREAST CANCER METASTATIC
     Dosage: 2.5 MG, DAILY
     Route: 048
     Dates: start: 20190124

REACTIONS (3)
  - Neutropenia [Recovered/Resolved]
  - White blood cell count decreased [Not Recovered/Not Resolved]
  - Pain [Not Recovered/Not Resolved]

NARRATIVE: CASE EVENT DATE: 20190215
